FAERS Safety Report 6784993-3 (Version None)
Quarter: 2010Q2

REPORT INFORMATION
  Report Type: 
  Country: None (occurrence: None)
  Receive Date: 20100622
  Receipt Date: 20100611
  Transmission Date: 20101027
  Serious: Yes (Other)
  Sender: FDA-Public Use
  Company Number: FR-ABBOTT-10P-056-0650481-00

PATIENT
  Age: 40 Year
  Sex: Female

DRUGS (24)
  1. AKINETON [Suspect]
     Indication: BIPOLAR I DISORDER
     Route: 048
     Dates: start: 20090213
  2. SEROPLEX FILM-COATED TABLETS [Suspect]
     Indication: BIPOLAR I DISORDER
     Route: 048
     Dates: start: 20090213, end: 20090228
  3. CLAMOXYL [Suspect]
     Indication: BIPOLAR I DISORDER
     Route: 048
     Dates: start: 20090225
  4. AMITRIPTYLINE HCL [Suspect]
     Indication: BIPOLAR I DISORDER
     Route: 048
     Dates: end: 20081010
  5. AMITRIPTYLINE HCL [Suspect]
     Dosage: OVERDOSE: 1 BOTTLE (UNSPECIFIED DOSE
     Route: 048
     Dates: start: 20081116, end: 20081116
  6. LEXOMIL [Suspect]
     Indication: BIPOLAR I DISORDER
     Route: 048
     Dates: end: 20081001
  7. LEXOMIL [Suspect]
     Dosage: OVERDOSE
     Route: 048
     Dates: start: 20081116, end: 20081116
  8. RIVOTRIL [Suspect]
     Indication: BIPOLAR I DISORDER
     Route: 048
     Dates: end: 20081001
  9. RIVOTRIL [Suspect]
     Route: 048
     Dates: start: 20090115
  10. LYSANXIA [Suspect]
     Indication: BIPOLAR I DISORDER
     Route: 048
     Dates: end: 20081001
  11. TOPIRAMATE [Suspect]
     Indication: BIPOLAR I DISORDER
     Route: 048
     Dates: end: 20081001
  12. ZYPREXA [Suspect]
     Indication: BIPOLAR I DISORDER
     Route: 048
     Dates: start: 20081001, end: 20081125
  13. ZYPREXA [Suspect]
     Route: 064
     Dates: start: 20081126, end: 20090212
  14. ZYPREXA [Suspect]
     Route: 064
     Dates: start: 20090213
  15. IMOVANE [Suspect]
     Indication: BIPOLAR I DISORDER
     Route: 047
     Dates: start: 20081118, end: 20090201
  16. LARGACTIL [Suspect]
     Indication: BIPOLAR I DISORDER
     Dosage: 60 GTT DROPS
     Route: 048
     Dates: start: 20081118
  17. SERESTA [Suspect]
     Indication: BIPOLAR I DISORDER
     Route: 048
     Dates: start: 20081118
  18. SPASFON LYOC [Suspect]
     Indication: DRUG USE FOR UNKNOWN INDICATION
     Route: 048
     Dates: start: 20081118
  19. EFFEXOR [Suspect]
     Indication: BIPOLAR I DISORDER
     Route: 048
     Dates: start: 20081120
  20. ZOLPIDEM [Suspect]
     Indication: BIPOLAR I DISORDER
     Route: 048
     Dates: start: 20081126, end: 20081201
  21. THERALENE [Suspect]
     Indication: BIPOLAR I DISORDER
     Dosage: 100 GTT DROPS
     Route: 048
     Dates: start: 20090115
  22. NEULEPTIL [Suspect]
     Indication: BIPOLAR I DISORDER
     Dosage: 50 GTT DROPS
     Route: 048
     Dates: start: 20090225
  23. GYNO PEVARYL [Concomitant]
     Indication: VAGINITIS BACTERIAL
     Route: 048
     Dates: start: 20081126, end: 20081202
  24. FLAGYL [Concomitant]
     Indication: VAGINITIS BACTERIAL
     Route: 048
     Dates: start: 20081126, end: 20081202

REACTIONS (7)
  - ABORTION INDUCED [None]
  - BLOOD PRESSURE INCREASED [None]
  - FATIGUE [None]
  - HELLP SYNDROME [None]
  - INTRA-UTERINE DEATH [None]
  - SLEEP DISORDER [None]
  - SOMNOLENCE [None]
